FAERS Safety Report 5419646-7 (Version None)
Quarter: 2007Q3

REPORT INFORMATION
  Report Type: 
  Country: None (occurrence: None)
  Receive Date: 20070820
  Receipt Date: 20070810
  Transmission Date: 20080115
  Serious: Yes (Other)
  Sender: FDA-Public Use
  Company Number: PHHO2007GB11248

PATIENT
  Sex: Female
  Weight: 82.1 kg

DRUGS (7)
  1. ZOLEDRONIC ACID [Suspect]
     Indication: METASTASES TO BONE
     Dosage: 4 MG
     Route: 042
     Dates: start: 20050729, end: 20070412
  2. CALCIUM CHLORIDE [Concomitant]
  3. VITAMIN D [Concomitant]
  4. WARFARIN [Concomitant]
  5. EPIRUBICIN [Concomitant]
  6. CYCLOPHOSPHAMIDE [Concomitant]
  7. DEXAMETHASONE 0.5MG TAB [Concomitant]

REACTIONS (6)
  - BACTERIAL INFECTION [None]
  - EXCESSIVE GRANULATION TISSUE [None]
  - MUCOSAL INFLAMMATION [None]
  - OSTEOMYELITIS CHRONIC [None]
  - OSTEONECROSIS [None]
  - PAIN IN JAW [None]
